FAERS Safety Report 9813753 (Version 1)
Quarter: 2014Q1

REPORT INFORMATION
  Report Type: Spontaneous
  Country: US (occurrence: None)
  Receive Date: 20140109
  Receipt Date: 20140109
  Transmission Date: 20141002
  Serious: Yes (Hospitalization)
  Sender: FDA-Public Use
  Company Number: None

PATIENT
  Age: 61 Year
  Sex: Male
  Weight: 65.4 kg

DRUGS (2)
  1. POTASSIUM CHLORIDE [Suspect]
     Indication: HYPOKALAEMIA
     Dosage: 20 MEQ BID PO
     Route: 048
     Dates: start: 20131223, end: 20131227
  2. SPIRONOLACTONE [Suspect]
     Route: 048
     Dates: start: 20110618, end: 20131229

REACTIONS (1)
  - Hyperkalaemia [None]
